FAERS Safety Report 12233754 (Version 2)
Quarter: 2016Q3

REPORT INFORMATION
  Report Type: Report from Study
  Country: CN (occurrence: CN)
  Receive Date: 20160404
  Receipt Date: 20160830
  Transmission Date: 20161109
  Serious: Yes (Other)
  Sender: FDA-Public Use
  Company Number: PHHY2016CN042863

PATIENT
  Age: 34 Year
  Sex: Male

DRUGS (48)
  1. BASILIXIMAB [Suspect]
     Active Substance: BASILIXIMAB
     Indication: PRODUCT USED FOR UNKNOWN INDICATION
     Dosage: 20 MG, QD
     Route: 065
     Dates: start: 20160125, end: 20160125
  2. BASILIXIMAB [Suspect]
     Active Substance: BASILIXIMAB
     Dosage: 20 MG, QD
     Route: 065
     Dates: start: 20160129, end: 20160129
  3. TACROLIMUS. [Suspect]
     Active Substance: TACROLIMUS
     Indication: PRODUCT USED FOR UNKNOWN INDICATION
     Dosage: 1 MG, QD
     Route: 065
     Dates: start: 20160205, end: 20160205
  4. LEVAMLODIPINE BESILATE [Concomitant]
     Active Substance: LEVAMLODIPINE BESYLATE
     Dosage: 5 MG, BID
     Route: 048
     Dates: start: 20160206, end: 20160217
  5. BISOPROLOL FUMARATE. [Concomitant]
     Active Substance: BISOPROLOL FUMARATE
     Dosage: 5 MG, QD
     Route: 048
     Dates: start: 20160206, end: 20160208
  6. HEPARIN SODIUM. [Concomitant]
     Active Substance: HEPARIN SODIUM
     Indication: ANTICOAGULANT THERAPY
     Dosage: 1 ML, QD
     Route: 042
     Dates: start: 20160124, end: 20160124
  7. SUCCINYLCHOLINE CHLORIDE. [Concomitant]
     Active Substance: SUCCINYLCHOLINE CHLORIDE
     Indication: ANAESTHESIA
     Dosage: 1 MG, QD
     Route: 042
     Dates: start: 20160125, end: 20160125
  8. DOPAMINE HCL [Concomitant]
     Active Substance: DOPAMINE HYDROCHLORIDE
     Indication: PROPHYLAXIS
     Dosage: 1 MG, QD
     Route: 042
     Dates: start: 20160125, end: 20160125
  9. REMIFENTANIL HYDROCHLORIDE [Concomitant]
     Active Substance: REMIFENTANIL HYDROCHLORIDE
     Indication: ANAESTHESIA
     Dosage: 1 MG, QD
     Route: 042
     Dates: start: 20160125, end: 20160125
  10. FUROSEMIDE. [Concomitant]
     Active Substance: FUROSEMIDE
     Indication: POLYURIA
     Dosage: 100 MG, QD
     Route: 042
     Dates: start: 20160124, end: 20160124
  11. MIDAZOLAM [Concomitant]
     Active Substance: MIDAZOLAM\MIDAZOLAM HYDROCHLORIDE
     Indication: ANAESTHESIA
     Dosage: 1 MG, QD
     Route: 042
     Dates: start: 20160125, end: 20160125
  12. SUFENTANIL CITRATE. [Concomitant]
     Active Substance: SUFENTANIL CITRATE
     Indication: ANAESTHESIA
  13. AB-ATROPINE SULFAT [Concomitant]
     Indication: ANAESTHESIA
     Dosage: 1 MG, QD
     Route: 042
     Dates: start: 20160125, end: 20160125
  14. CALCIPOT//CALCIUM GLUCONATE [Concomitant]
     Dosage: 20 ML, QD
     Route: 042
     Dates: start: 20160126, end: 20160131
  15. BUDESONIDE. [Concomitant]
     Active Substance: BUDESONIDE
     Indication: SPUTUM ABNORMAL
     Dosage: 2 ML, BID
     Route: 055
     Dates: start: 20160126, end: 20160205
  16. TROPISETRON HYDROCHLORIDE [Concomitant]
     Active Substance: TROPISETRON HYDROCHLORIDE
     Indication: PROPHYLAXIS OF NAUSEA AND VOMITING
     Dosage: 1 MG, QD
     Route: 042
     Dates: start: 20160125, end: 20160125
  17. MYFORTIC [Suspect]
     Active Substance: MYCOPHENOLATE SODIUM
     Indication: RENAL TRANSPLANT
     Dosage: 1440 MG, QD
     Route: 065
     Dates: start: 20160125, end: 20160125
  18. TACROLIMUS. [Suspect]
     Active Substance: TACROLIMUS
     Dosage: 1.5 MG, QD
     Route: 065
     Dates: start: 20160206, end: 20160206
  19. LEVAMLODIPINE BESILATE [Concomitant]
     Active Substance: LEVAMLODIPINE BESYLATE
     Indication: BLOOD PRESSURE ABNORMAL
     Dosage: 5 MG, BID
     Route: 048
     Dates: start: 20160205, end: 20160205
  20. BISOPROLOL FUMARATE. [Concomitant]
     Active Substance: BISOPROLOL FUMARATE
     Indication: BLOOD PRESSURE ABNORMAL
     Dosage: 5 MG, BID
     Route: 048
     Dates: start: 20160206, end: 20160206
  21. NEOSTIGMINE METHYLSULFATE. [Concomitant]
     Active Substance: NEOSTIGMINE METHYLSULFATE
     Indication: CHOLINESTERASE INHIBITION
     Dosage: 1 MG, QD
     Route: 042
     Dates: start: 20160125, end: 20160125
  22. TERBUTALINE SULFATE. [Concomitant]
     Active Substance: TERBUTALINE SULFATE
     Indication: PRODUCTIVE COUGH
     Dosage: 5 MG, BID
     Route: 055
     Dates: start: 20160126, end: 20160205
  23. GRANISETRON HYDROCHLORIDE. [Concomitant]
     Active Substance: GRANISETRON HYDROCHLORIDE
     Indication: PROPHYLAXIS OF NAUSEA AND VOMITING
     Dosage: 1 MG, QD
     Route: 042
     Dates: start: 20160125, end: 20160125
  24. ADRENALINE HYDROCHLORIDE [Concomitant]
     Indication: PROPHYLAXIS
     Dosage: 1 MG, QD
     Route: 042
     Dates: start: 20160125, end: 20160125
  25. INSULIN [Concomitant]
     Active Substance: INSULIN NOS
     Indication: BLOOD GLUCOSE ABNORMAL
     Dosage: 1 IU, QD
     Route: 042
     Dates: start: 20160125, end: 20160125
  26. PANTOPRAZOLE SODIUM. [Concomitant]
     Active Substance: PANTOPRAZOLE SODIUM
     Indication: GASTROOESOPHAGEAL REFLUX PROPHYLAXIS
     Dosage: 40 MG, BID
     Route: 042
     Dates: start: 20160126, end: 20160205
  27. SUFENTANIL CITRATE. [Concomitant]
     Active Substance: SUFENTANIL CITRATE
     Indication: ANALGESIC THERAPY
  28. LEVAMLODIPINE BESILATE [Concomitant]
     Active Substance: LEVAMLODIPINE BESYLATE
     Dosage: 2.5 MG, BID
     Route: 048
     Dates: start: 20160217, end: 20160302
  29. FLUMAZENIL. [Concomitant]
     Active Substance: FLUMAZENIL
     Indication: ANAESTHESIA
     Dosage: 500 UG, QD
     Route: 042
     Dates: start: 20160125, end: 20160125
  30. TRAMADOL HYDROCHLORIDE. [Concomitant]
     Active Substance: TRAMADOL HYDROCHLORIDE
     Indication: ANALGESIC THERAPY
     Dosage: 1 MG, QD
     Route: 042
     Dates: start: 20160125, end: 20160125
  31. PANTOPRAZOLE SODIUM. [Concomitant]
     Active Substance: PANTOPRAZOLE SODIUM
     Indication: ANTACID THERAPY
     Dosage: 40 MG, QD
     Route: 042
     Dates: start: 20160126, end: 20160126
  32. SUFENTANIL CITRATE. [Concomitant]
     Active Substance: SUFENTANIL CITRATE
     Indication: ANALGESIC THERAPY
     Dosage: 1 UG, QD
     Route: 042
     Dates: start: 20160125, end: 20160125
  33. TACROLIMUS. [Suspect]
     Active Substance: TACROLIMUS
     Dosage: 1 MG, QD
     Route: 065
     Dates: start: 20160206, end: 20160217
  34. SODIUM BICARBONATE. [Concomitant]
     Active Substance: SODIUM BICARBONATE
     Indication: ANTACID THERAPY
     Dosage: 1 ML, QD
     Route: 042
     Dates: start: 20160125, end: 20160125
  35. SEVOFLURANE. [Concomitant]
     Active Substance: SEVOFLURANE
     Indication: ANAESTHESIA
     Dosage: 10 ML, QD
     Route: 042
     Dates: start: 20160125, end: 20160125
  36. CEFMETAZOLE SODIUM [Concomitant]
     Active Substance: CEFMETAZOLE SODIUM
     Dosage: 2000 MG, BID
     Route: 042
     Dates: start: 20160126, end: 20160205
  37. CISATRACURIUM BESILATE [Concomitant]
     Active Substance: CISATRACURIUM BESYLATE
     Indication: ANAESTHESIA
     Dosage: 10 MG, QD
     Route: 042
     Dates: start: 20160125, end: 20160125
  38. PROPOFOL. [Concomitant]
     Active Substance: PROPOFOL
     Indication: ANAESTHESIA
     Dosage: 1 MG, QD
     Route: 042
     Dates: start: 20160125, end: 20160125
  39. DEZOCINE [Concomitant]
     Active Substance: DEZOCINE
     Indication: ANALGESIC THERAPY
     Dosage: 1 MG, QD
     Route: 042
     Dates: start: 20160125, end: 20160125
  40. EPHEDRINE HYDROCHLORIDE [Concomitant]
     Active Substance: EPHEDRINE HYDROCHLORIDE
     Indication: ANAESTHESIA
     Dosage: 1 MG, QD
     Route: 042
     Dates: start: 20160125, end: 20160125
  41. METARAMINOL BITARTRATE [Concomitant]
     Active Substance: METARAMINOL BITARTRATE
     Indication: BLOOD PRESSURE ABNORMAL
     Dosage: 1 MG, QD
     Route: 042
     Dates: start: 20160125, end: 20160125
  42. CEFMETAZOLE SODIUM [Concomitant]
     Active Substance: CEFMETAZOLE SODIUM
     Indication: INFECTION PROPHYLAXIS
     Dosage: 2000 MG, QD
     Route: 042
     Dates: start: 20160124, end: 20160125
  43. METOPROLOL SUCCINATE. [Concomitant]
     Active Substance: METOPROLOL SUCCINATE
     Indication: BLOOD PRESSURE ABNORMAL
     Dosage: 47.5 MG, QD
     Route: 048
     Dates: start: 20160205, end: 20160205
  44. ESMOLOL HYDROCHLORIDE. [Concomitant]
     Active Substance: ESMOLOL HYDROCHLORIDE
     Indication: BLOOD PRESSURE ABNORMAL
     Dosage: 1 MG, QD
     Route: 042
     Dates: start: 20160125, end: 20160125
  45. URAPIDIL HYDROCHLORIDE [Concomitant]
     Active Substance: URAPIDIL HYDROCHLORIDE
     Indication: BLOOD PRESSURE ABNORMAL
     Dosage: 1 MG, QD
     Route: 042
     Dates: start: 20160125, end: 20160125
  46. SUFENTANIL CITRATE. [Concomitant]
     Active Substance: SUFENTANIL CITRATE
     Indication: ANAESTHESIA
     Dosage: 1 UG, QD
     Dates: start: 20160125, end: 20160125
  47. HEPARIN SODIUM. [Concomitant]
     Active Substance: HEPARIN SODIUM
     Dosage: 1 IU, QD
     Route: 042
     Dates: start: 20160125, end: 20160125
  48. CALCIPOT//CALCIUM GLUCONATE [Concomitant]
     Indication: MINERAL SUPPLEMENTATION
     Dosage: 1 ML, QD
     Route: 042
     Dates: start: 20160125, end: 20160125

REACTIONS (6)
  - Bone marrow failure [Recovering/Resolving]
  - Blood glucose increased [Unknown]
  - Proteinuria [Unknown]
  - Pyuria [Unknown]
  - Blood urea increased [Unknown]
  - Blood triglycerides increased [Unknown]

NARRATIVE: CASE EVENT DATE: 20160128
